FAERS Safety Report 7350291-2 (Version None)
Quarter: 2011Q1

REPORT INFORMATION
  Report Type: 
  Country: None (occurrence: None)
  Receive Date: 20110314
  Receipt Date: 20110303
  Transmission Date: 20110831
  Serious: Yes (Other)
  Sender: FDA-Public Use
  Company Number: US-ELI_LILLY_AND_COMPANY-US201103001460

PATIENT
  Age: 60 Year
  Sex: Female

DRUGS (6)
  1. DRUG USED IN DIABETES [Concomitant]
  2. CYMBALTA [Suspect]
     Indication: DEPRESSION
     Dosage: 60 MG, UNK
     Dates: start: 20060101, end: 20090908
  3. LAMOTRIGINE [Concomitant]
  4. CYMBALTA [Suspect]
     Dosage: 90 MG, UNK
     Dates: start: 20090909
  5. ADDERALL 10 [Concomitant]
  6. ANTIHYPERTENSIVES [Concomitant]

REACTIONS (1)
  - RENAL FAILURE [None]
